FAERS Safety Report 9399156 (Version 3)
Quarter: 2013Q3

REPORT INFORMATION
  Report Type: Spontaneous
  Country: JP (occurrence: None)
  Receive Date: 20130709
  Receipt Date: 20130830
  Transmission Date: 20140515
  Serious: Yes (Hospitalization)
  Sender: FDA-Public Use
  Company Number: JP-012227

PATIENT
  Age: 75 Year
  Sex: Male
  Weight: 76.1 kg

DRUGS (10)
  1. DEGARELIX [Suspect]
     Indication: PROSTATE CANCER
     Route: 058
     Dates: start: 20121203, end: 20121203
  2. PARACETAMOL + CAFFEINE [Suspect]
     Indication: NASOPHARYNGITIS
     Route: 048
     Dates: start: 20130525, end: 20130525
  3. MEROPEN [Suspect]
     Indication: CELLULITIS
     Route: 042
     Dates: start: 20130527, end: 20130528
  4. VANCOMYCIN (VANCOMYCIN) [Suspect]
     Indication: CELLULITIS
     Dosage: 1.25 G UID/QD INTRAVENOUS
     Dates: start: 20130527, end: 20130528
  5. LEUPLIN [Concomitant]
  6. ESTRANA [Concomitant]
  7. DECADRON /00016001/ [Concomitant]
  8. TAKEPRON [Concomitant]
  9. FLUITRAN [Concomitant]
  10. BAYASPIRIN [Concomitant]

REACTIONS (7)
  - Erythema multiforme [None]
  - Injection site rash [None]
  - Shock [None]
  - Intentional drug misuse [None]
  - Nasopharyngitis [None]
  - Malaise [None]
  - Pyrexia [None]
